FAERS Safety Report 9755270 (Version 1)
Quarter: 2013Q4

REPORT INFORMATION
  Report Type: Spontaneous
  Country: US (occurrence: US)
  Receive Date: 20131213
  Receipt Date: 20131213
  Transmission Date: 20140711
  Serious: No
  Sender: FDA-Public Use
  Company Number: US-GLAXOSMITHKLINE-A1015190A

PATIENT
  Sex: Female

DRUGS (1)
  1. NICORETTE PATCH [Suspect]
     Indication: TOBACCO ABUSE
     Route: 062

REACTIONS (4)
  - Hypersensitivity [Unknown]
  - Application site erythema [Unknown]
  - Erythema [Unknown]
  - Pruritus [Unknown]
